FAERS Safety Report 8485469-8 (Version None)
Quarter: 2012Q3

REPORT INFORMATION
  Report Type: 
  Country: None (occurrence: None)
  Receive Date: 20120703
  Receipt Date: 20120630
  Transmission Date: 20120928
  Serious: Yes (Death)
  Sender: FDA-Public Use
  Company Number: IN-B.I. PHARMACEUTICALS,INC./RIDGEFIELD-2012-CS-00944IG

PATIENT
  Age: 74 Year
  Sex: Male

DRUGS (1)
  1. MIRAPEX [Suspect]
     Indication: PARKINSON'S DISEASE
     Dosage: STRENGTH: 0.375;OD  TAKEN
     Route: 048
     Dates: start: 20120426

REACTIONS (1)
  - DEATH [None]
